FAERS Safety Report 6390639-9 (Version None)
Quarter: 2009Q4

REPORT INFORMATION
  Report Type: 
  Country: None (occurrence: None)
  Receive Date: 20091003
  Receipt Date: 20090921
  Transmission Date: 20100525
  Serious: Yes (Hospitalization)
  Sender: FDA-Public Use
  Company Number: 2009-03375

PATIENT

DRUGS (1)
  1. VELCADE [Suspect]
     Indication: ADENOCARCINOMA
     Dosage: 1.3 MG/M2, INTRAVENOUS
     Route: 042
     Dates: start: 20090510, end: 20090819

REACTIONS (6)
  - CONSTIPATION [None]
  - DYSPHAGIA [None]
  - MALAISE [None]
  - NAUSEA [None]
  - PAIN [None]
  - VOMITING [None]
